FAERS Safety Report 20429924 (Version 1)
Quarter: 2022Q1

REPORT INFORMATION
  Report Type: Report from Study
  Country: FR (occurrence: FR)
  Receive Date: 20220204
  Receipt Date: 20220204
  Transmission Date: 20220423
  Serious: Yes (Life-Threatening, Other)
  Sender: FDA-Public Use
  Company Number: FR-SERVIER-S19003301

PATIENT

DRUGS (8)
  1. PEGASPARGASE [Suspect]
     Active Substance: PEGASPARGASE
     Indication: Acute lymphocytic leukaemia
     Dosage: 1900 IU, QD ON D12
     Route: 042
     Dates: start: 20180928
  2. VINCRISTINE SULFATE [Suspect]
     Active Substance: VINCRISTINE SULFATE
     Indication: Acute lymphocytic leukaemia
     Dosage: 1.2 MG, QD, D8, D15, D22, D29
     Route: 042
     Dates: start: 20180924
  3. DAUNORUBICIN HYDROCHLORIDE [Suspect]
     Active Substance: DAUNORUBICIN HYDROCHLORIDE
     Indication: Acute lymphocytic leukaemia
     Dosage: 23 MG, QD, D8, D15, D22, D29
     Route: 042
     Dates: start: 20180924
  4. PREDNISOLONE [Suspect]
     Active Substance: PREDNISOLONE
     Indication: Acute lymphocytic leukaemia
     Dosage: 46,2 MG, QD, D8 TO D28
     Route: 048
     Dates: start: 20180624
  5. CYTARABINE [Suspect]
     Active Substance: CYTARABINE
     Indication: Acute lymphocytic leukaemia
     Dosage: 30 MG, QD, D9, D13, D18, D24
     Route: 037
     Dates: start: 20180929
  6. METHOTREXATE [Suspect]
     Active Substance: METHOTREXATE
     Indication: Acute lymphocytic leukaemia
     Dosage: 12 MG, QD, D9, D13, D18, D24
     Route: 037
     Dates: start: 20180929
  7. TN UNSPECIFIED [Concomitant]
     Indication: Acute lymphocytic leukaemia
     Dosage: 12 MG, QD, D9, D13, D18, D24
     Route: 037
     Dates: start: 20180929
  8. TN UNSPECIFIED [Concomitant]
     Indication: Pain
     Dosage: 1080 MG, QD
     Route: 042
     Dates: start: 20180916

REACTIONS (3)
  - Sepsis [Recovered/Resolved]
  - Mucosal inflammation [Recovered/Resolved]
  - Hyperbilirubinaemia [Recovered/Resolved]

NARRATIVE: CASE EVENT DATE: 20181006
